FAERS Safety Report 20533777 (Version 3)
Quarter: 2022Q1

REPORT INFORMATION
  Report Type: Report from Study
  Country: ES (occurrence: ES)
  Receive Date: 20220301
  Receipt Date: 20220323
  Transmission Date: 20220423
  Serious: Yes (Death, Life-Threatening, Hospitalization)
  Sender: FDA-Public Use
  Company Number: ES-IMMUNOMEDICS, INC.-2021IMMU000100

PATIENT
  Age: 72 Year
  Sex: Female
  Weight: 78 kg

DRUGS (7)
  1. SACITUZUMAB GOVITECAN [Suspect]
     Active Substance: SACITUZUMAB GOVITECAN
     Indication: Breast cancer metastatic
     Dosage: 10 MG/KG DAYS 1 AND 8 OF 21-DAYS CYCLE
     Route: 042
     Dates: start: 20210203, end: 20210203
  2. SACITUZUMAB GOVITECAN [Suspect]
     Active Substance: SACITUZUMAB GOVITECAN
     Dosage: 10 MG/KG DAYS 1 AND 8 OF 21-DAYS CYCLE
     Route: 042
     Dates: start: 20210210, end: 20210210
  3. ASPIRIN [Concomitant]
     Active Substance: ASPIRIN
     Indication: Hypertension
     Dosage: 100 MG, QD
     Route: 048
  4. AMLODIPINE [Concomitant]
     Active Substance: AMLODIPINE BESYLATE
     Indication: Hypertension
     Dosage: 5 MG, QD
     Route: 048
  5. FAMOTIDINE [Concomitant]
     Active Substance: FAMOTIDINE
     Indication: Hypertension
     Dosage: 20 MG, QD
     Route: 048
  6. SIMVASTATIN [Concomitant]
     Active Substance: SIMVASTATIN
     Indication: Hypertension
     Dosage: 20 MG, QD
     Route: 048
  7. VALSARTAN [Concomitant]
     Active Substance: VALSARTAN
     Indication: Hypertension
     Dosage: 160 MG, QD
     Route: 048

REACTIONS (3)
  - Septic shock [Fatal]
  - Large intestine perforation [Not Recovered/Not Resolved]
  - Neutropenic colitis [Not Recovered/Not Resolved]

NARRATIVE: CASE EVENT DATE: 20210215
